FAERS Safety Report 5890516-3 (Version None)
Quarter: 2008Q3

REPORT INFORMATION
  Report Type: 
  Country: None (occurrence: None)
  Receive Date: 20080922
  Receipt Date: 20080912
  Transmission Date: 20090109
  Serious: Yes (Hospitalization)
  Sender: FDA-Public Use
  Company Number: PHHY2008NO21301

PATIENT
  Sex: Male

DRUGS (6)
  1. TEGRETOL [Suspect]
     Indication: POLYNEUROPATHY
     Dosage: 200 MG X 1.5-2
     Route: 048
     Dates: start: 20080201, end: 20080701
  2. DIOVAN [Suspect]
     Dosage: 120 MG MORNING
  3. ALBYL-E [Concomitant]
     Dosage: 160 MG/DAY
     Route: 048
  4. NASONEX [Concomitant]
     Route: 045
  5. CALCIUM SANDOZ [Concomitant]
     Dosage: 1000 MG DAILY
     Route: 048
  6. PRAVASTATIN [Concomitant]
     Dosage: 20 MG EVENING

REACTIONS (3)
  - BLOODY AIRWAY DISCHARGE [None]
  - DYSPNOEA [None]
  - IDIOPATHIC PULMONARY FIBROSIS [None]
